FAERS Safety Report 20690938 (Version 1)
Quarter: 2022Q2

REPORT INFORMATION
  Report Type: Spontaneous
  Country: US (occurrence: None)
  Receive Date: 20220406
  Receipt Date: 20220406
  Transmission Date: 20220721
  Serious: No
  Sender: FDA-Public Use
  Company Number: None

PATIENT
  Age: 47 Year
  Sex: Female

DRUGS (12)
  1. JAKAFI [Suspect]
     Active Substance: RUXOLITINIB
     Indication: Graft versus host disease
     Dosage: FREQUENCY : DAILY;?
     Route: 048
     Dates: start: 20210324, end: 20220405
  2. CALCIUM [Concomitant]
     Active Substance: CALCIUM
  3. Vitamin D [Concomitant]
  4. CRESEMBA [Concomitant]
  5. FUROSEMIDE [Concomitant]
  6. PREDNISONE [Concomitant]
  7. Metroprolol [Concomitant]
  8. GABAPENTIN [Concomitant]
  9. ELIQUIS [Concomitant]
  10. DULOXETINE [Concomitant]
  11. SPIRONOLACTONE [Concomitant]
  12. Acyclovir [Concomitant]

REACTIONS (3)
  - Peripheral swelling [None]
  - Abdominal distension [None]
  - Therapy cessation [None]

NARRATIVE: CASE EVENT DATE: 20220316
